FAERS Safety Report 15778523 (Version 1)
Quarter: 2018Q4

REPORT INFORMATION
  Report Type: Spontaneous
  Country: JP (occurrence: JP)
  Receive Date: 20181231
  Receipt Date: 20181231
  Transmission Date: 20190205
  Serious: Yes (Hospitalization)
  Sender: FDA-Public Use
  Company Number: JP-CELGENEUS-JPN-20181208290

PATIENT
  Age: 71 Year
  Sex: Male

DRUGS (2)
  1. ISTODAX [Suspect]
     Active Substance: ROMIDEPSIN
     Dosage: UNKNOWN
     Route: 041
     Dates: start: 20181226, end: 20181226
  2. ISTODAX [Suspect]
     Active Substance: ROMIDEPSIN
     Indication: PERIPHERAL T-CELL LYMPHOMA UNSPECIFIED
     Dosage: UNKNOWN
     Route: 041
     Dates: start: 20181214, end: 20181219

REACTIONS (2)
  - Colitis ischaemic [Recovered/Resolved]
  - Diarrhoea [Recovered/Resolved]

NARRATIVE: CASE EVENT DATE: 20181219
